FAERS Safety Report 21548756 (Version 1)
Quarter: 2022Q4

REPORT INFORMATION
  Report Type: Spontaneous
  Country: US (occurrence: US)
  Receive Date: 20221103
  Receipt Date: 20221103
  Transmission Date: 20230113
  Serious: Yes (Hospitalization)
  Sender: FDA-Public Use
  Company Number: US-MYLANLABS-2022M1119987

PATIENT
  Age: 57 Year
  Sex: Male

DRUGS (1)
  1. BUPRENORPHINE HYDROCHLORIDE\NALOXONE HYDROCHLORIDE [Suspect]
     Active Substance: BUPRENORPHINE HYDROCHLORIDE\NALOXONE HYDROCHLORIDE
     Indication: Drug withdrawal syndrome
     Dosage: UNK; HE RECEIVED ORAL BUPRENORPHINE/NALOXONE 2.0/0.5MG TABLET...
     Route: 048

REACTIONS (2)
  - Incorrect route of product administration [Unknown]
  - Therapeutic response delayed [Unknown]
